FAERS Safety Report 19145263 (Version 2)
Quarter: 2021Q2

REPORT INFORMATION
  Report Type: Spontaneous
  Country: JP (occurrence: JP)
  Receive Date: 20210416
  Receipt Date: 20210423
  Transmission Date: 20210717
  Serious: Yes (Hospitalization, Other)
  Sender: FDA-Public Use
  Company Number: JP-009507513-2104JPN002770

PATIENT
  Age: 69 Year
  Sex: Male
  Weight: 46 kg

DRUGS (29)
  1. BROTIZOLAM [Concomitant]
     Active Substance: BROTIZOLAM
     Dosage: UNK
     Route: 065
     Dates: start: 20190522
  2. TRIAZOLAM. [Concomitant]
     Active Substance: TRIAZOLAM
     Dosage: UNK
     Route: 065
     Dates: start: 20210319
  3. MIDAZOLAM. [Concomitant]
     Active Substance: MIDAZOLAM
     Dosage: UNK
     Route: 065
     Dates: start: 20210330, end: 20210330
  4. TRAMADOL HYDROCHLORIDE. [Concomitant]
     Active Substance: TRAMADOL HYDROCHLORIDE
     Dosage: UNK
     Route: 065
     Dates: start: 20190123
  5. MEPERIDINE HYDROCHLORIDE. [Concomitant]
     Active Substance: MEPERIDINE HYDROCHLORIDE
     Dosage: UNK
     Route: 065
     Dates: start: 20210330, end: 20210330
  6. OPDIVO [Suspect]
     Active Substance: NIVOLUMAB
     Indication: OESOPHAGEAL CARCINOMA
     Dosage: 240 MG
     Route: 041
     Dates: start: 20210303, end: 20210303
  7. HEPARINOID [Concomitant]
     Active Substance: CHONDROITIN SULFATE (BOVINE)
     Dosage: UNK
     Route: 065
     Dates: start: 20190319
  8. SODIUM ALGINATE [Concomitant]
     Active Substance: SODIUM ALGINATE
     Dosage: UNK
     Route: 065
     Dates: start: 20190525
  9. AZ (SODIUM GUALENATE) [Concomitant]
     Dosage: UNK
     Route: 065
     Dates: start: 20190213
  10. HALOPERIDOL. [Concomitant]
     Active Substance: HALOPERIDOL
     Dosage: UNK
     Route: 065
     Dates: start: 20210330, end: 20210330
  11. NICARDIPINE HYDROCHLORIDE. [Concomitant]
     Active Substance: NICARDIPINE HYDROCHLORIDE
     Dosage: UNK
     Route: 065
     Dates: start: 20210330, end: 20210330
  12. PALONOSETRON HYDROCHLORIDE. [Concomitant]
     Active Substance: PALONOSETRON HYDROCHLORIDE
     Dosage: UNK
     Route: 065
     Dates: start: 20190213
  13. GLYCERIN. [Concomitant]
     Active Substance: GLYCERIN
     Dosage: UNK
     Route: 065
     Dates: start: 20190226
  14. SENNOSIDES. [Concomitant]
     Active Substance: SENNOSIDES
     Dosage: UNK
     Route: 065
  15. MOSAPRIDE CITRATE [Concomitant]
     Active Substance: MOSAPRIDE CITRATE
     Dosage: UNK
     Route: 065
     Dates: start: 20200911
  16. TRANEXAMIC ACID. [Concomitant]
     Active Substance: TRANEXAMIC ACID
     Dosage: UNK
     Route: 065
     Dates: start: 20210330, end: 20210330
  17. FOSAPREPITANT DIMEGLUMINE. [Suspect]
     Active Substance: FOSAPREPITANT DIMEGLUMINE
     Indication: PROPHYLAXIS OF NAUSEA AND VOMITING
     Dosage: UNK
     Route: 041
     Dates: start: 20190213
  18. ACETAMINOPHEN. [Concomitant]
     Active Substance: ACETAMINOPHEN
     Dosage: UNK
     Route: 065
     Dates: start: 20190123
  19. MAGNESIUM SULFATE. [Concomitant]
     Active Substance: MAGNESIUM SULFATE
     Dosage: UNK
     Route: 065
     Dates: start: 20190213
  20. OXYCODONE [Concomitant]
     Active Substance: OXYCODONE
     Dosage: UNK
     Route: 065
     Dates: start: 20190215
  21. RABEPRAZOLE SODIUM. [Concomitant]
     Active Substance: RABEPRAZOLE SODIUM
     Dosage: UNK
     Route: 065
     Dates: start: 20210329, end: 20210330
  22. TRIAMCINOLONE ACETONIDE. [Concomitant]
     Active Substance: TRIAMCINOLONE ACETONIDE
     Dosage: UNK
     Route: 065
     Dates: start: 20210330, end: 20210330
  23. DEXMEDETOMIDINE HYDROCHLORIDE. [Concomitant]
     Active Substance: DEXMEDETOMIDINE HYDROCHLORIDE
     Dosage: UNK
     Route: 065
     Dates: start: 20210330, end: 20210330
  24. METOCLOPRAMIDE. [Concomitant]
     Active Substance: METOCLOPRAMIDE
     Dosage: UNK
     Route: 065
     Dates: start: 20190315
  25. BISACODYL. [Concomitant]
     Active Substance: BISACODYL
     Dosage: UNK
     Route: 065
     Dates: start: 20190226
  26. SOLACET F [Concomitant]
     Active Substance: CALCIUM CHLORIDE\POTASSIUM CHLORIDE\SODIUM ACETATE\SODIUM CHLORIDE
     Dosage: UNK, QD
     Route: 065
     Dates: start: 20210330, end: 20210330
  27. CARBAZOCHROME SODIUM SULFONATE [Concomitant]
     Active Substance: CARBAZOCHROME SODIUM SULFONATE
     Dosage: UNK
     Route: 065
     Dates: start: 20210330, end: 20210330
  28. VONOPRAZAN FUMARATE [Concomitant]
     Active Substance: VONOPRAZAN FUMARATE
     Dosage: UNK
     Route: 065
  29. MAGNESIUM OXIDE. [Concomitant]
     Active Substance: MAGNESIUM OXIDE
     Dosage: UNK
     Route: 065
     Dates: start: 20190218

REACTIONS (1)
  - Oesophageal perforation [Recovered/Resolved]

NARRATIVE: CASE EVENT DATE: 20210330
